FAERS Safety Report 12230084 (Version 1)
Quarter: 2016Q1

REPORT INFORMATION
  Report Type: Spontaneous
  Country: US (occurrence: None)
  Receive Date: 20160331
  Receipt Date: 20160331
  Transmission Date: 20160526
  Serious: No
  Sender: FDA-Public Use
  Company Number: None

PATIENT
  Age: 78 Year
  Sex: Female

DRUGS (28)
  1. CALCIUM [Concomitant]
     Active Substance: CALCIUM
  2. CEPHALEXIN. [Concomitant]
     Active Substance: CEPHALEXIN
  3. CARVEDILOL. [Concomitant]
     Active Substance: CARVEDILOL
  4. NITROFURANTOIN. [Concomitant]
     Active Substance: NITROFURANTOIN
  5. GABAPENTIN. [Concomitant]
     Active Substance: GABAPENTIN
  6. ESCITALOPRAM [Concomitant]
     Active Substance: ESCITALOPRAM OXALATE
  7. FLUTICASONE [Concomitant]
     Active Substance: FLUTICASONE\FLUTICASONE PROPIONATE
  8. OXYCODONE AND ACETAMINOPHEN [Concomitant]
     Active Substance: ACETAMINOPHEN\OXYCODONE HYDROCHLORIDE
  9. FASLODEX [Concomitant]
     Active Substance: FULVESTRANT
  10. ASPIRIN. [Concomitant]
     Active Substance: ASPIRIN
  11. PREDNISONE. [Concomitant]
     Active Substance: PREDNISONE
  12. VALACYCLOVIR [Concomitant]
     Active Substance: VALACYCLOVIR HYDROCHLORIDE
  13. IBRANCE [Suspect]
     Active Substance: PALBOCICLIB
     Indication: BREAST CANCER
     Dosage: 75MG DAILY FOR 3 WEEKS ORAL
     Route: 048
     Dates: start: 20160217
  14. LETROZOLE. [Concomitant]
     Active Substance: LETROZOLE
  15. ONDANSETRON [Concomitant]
     Active Substance: ONDANSETRON
  16. PROAIR HFA [Concomitant]
     Active Substance: ALBUTEROL SULFATE
  17. FUROSEMIDE. [Concomitant]
     Active Substance: FUROSEMIDE
  18. AZITHROMYCIN ANHYDROUS. [Concomitant]
     Active Substance: AZITHROMYCIN ANHYDROUS
  19. SYNTHROID [Concomitant]
     Active Substance: LEVOTHYROXINE SODIUM
  20. SPIRIVA [Concomitant]
     Active Substance: TIOTROPIUM BROMIDE MONOHYDRATE
  21. LYRICA [Concomitant]
     Active Substance: PREGABALIN
  22. SIMVASTATIN. [Concomitant]
     Active Substance: SIMVASTATIN
  23. BREO ELLIPTA [Concomitant]
     Active Substance: FLUTICASONE FUROATE\VILANTEROL TRIFENATATE
  24. ALPRAZOLAM. [Concomitant]
     Active Substance: ALPRAZOLAM
  25. LEVOTHYROXIN [Concomitant]
     Active Substance: LEVOTHYROXINE
  26. DOXCYCYL [Concomitant]
  27. METFORMIN [Concomitant]
     Active Substance: METFORMIN HYDROCHLORIDE
  28. POT CL MICRO [Concomitant]

REACTIONS (2)
  - Feeling cold [None]
  - Feeling abnormal [None]
